FAERS Safety Report 17605487 (Version 1)
Quarter: 2020Q1

REPORT INFORMATION
  Report Type: Spontaneous
  Country: US (occurrence: US)
  Receive Date: 20200331
  Receipt Date: 20200331
  Transmission Date: 20200409
  Serious: No
  Sender: FDA-Public Use
  Company Number: US-SA-2020SA078588

PATIENT
  Age: 26 Year
  Sex: Female

DRUGS (6)
  1. MONTELUKAST SODIUM. [Concomitant]
     Active Substance: MONTELUKAST SODIUM
  2. FLONASE [Concomitant]
     Active Substance: FLUTICASONE PROPIONATE
  3. IBUPROFEN. [Concomitant]
     Active Substance: IBUPROFEN
  4. VITAMIN D [VITAMIN D NOS] [Concomitant]
     Active Substance: VITAMIN D NOS
  5. DUPIXENT [Suspect]
     Active Substance: DUPILUMAB
     Indication: NEURODERMATITIS
     Dosage: 300 MG, QOW
     Route: 058
     Dates: start: 20190525
  6. PRENATAL 1+1 [ASCORBIC ACID;CALCIUM;COLECALCIFEROL;COPPER;CYANOCOBALAM [Concomitant]

REACTIONS (1)
  - Exposure during pregnancy [Unknown]
